FAERS Safety Report 17251091 (Version 1)
Quarter: 2020Q1

REPORT INFORMATION
  Report Type: Spontaneous
  Country: SE (occurrence: SE)
  Receive Date: 20200109
  Receipt Date: 20200109
  Transmission Date: 20200409
  Serious: Yes (Other)
  Sender: FDA-Public Use
  Company Number: SE-ACCORD-169053

PATIENT
  Age: 80 Year
  Sex: Female

DRUGS (1)
  1. QUETIAPINE ACCORD [Suspect]
     Active Substance: QUETIAPINE
     Indication: PRODUCT USED FOR UNKNOWN INDICATION
     Dosage: STRENGTH-25 MG
     Route: 048
     Dates: start: 201912

REACTIONS (5)
  - Dyspnoea [Unknown]
  - Epistaxis [Unknown]
  - Vaginal haemorrhage [Unknown]
  - Dry mouth [Unknown]
  - Product substitution issue [Unknown]

NARRATIVE: CASE EVENT DATE: 20191212
